FAERS Safety Report 11006311 (Version 1)
Quarter: 2015Q2

REPORT INFORMATION
  Report Type: Report from Study
  Country: DE (occurrence: DE)
  Receive Date: 20150409
  Receipt Date: 20150409
  Transmission Date: 20150821
  Serious: Yes (Death, Other)
  Sender: FDA-Public Use
  Company Number: DE-MYLANLABS-2015M1011610

PATIENT

DRUGS (10)
  1. DOXYLAMINE [Concomitant]
     Active Substance: DOXYLAMINE
     Route: 065
  2. PAPAVERINE [Concomitant]
     Active Substance: PAPAVERINE
     Route: 065
  3. PHENACETIN [Suspect]
     Active Substance: PHENACETIN
     Route: 045
  4. HYDROXYZINE [Suspect]
     Active Substance: HYDROXYZINE\HYDROXYZINE HYDROCHLORIDE
     Route: 045
  5. PARACETAMOL [Concomitant]
     Active Substance: ACETAMINOPHEN
     Route: 065
  6. LEVAMISOLE [Suspect]
     Active Substance: LEVAMISOLE
     Route: 045
  7. NOSCAPINE [Concomitant]
     Active Substance: NOSCAPINE
     Route: 065
  8. CAFFEINE. [Concomitant]
     Active Substance: CAFFEINE
     Route: 065
  9. LIDOCAINE. [Suspect]
     Active Substance: LIDOCAINE
  10. SILDENAFIL. [Concomitant]
     Active Substance: SILDENAFIL
     Route: 065

REACTIONS (4)
  - Cardiac arrest [Fatal]
  - Fall [Unknown]
  - Death [Fatal]
  - Apnoea [Fatal]
